FAERS Safety Report 5503283-X (Version None)
Quarter: 2007Q4

REPORT INFORMATION
  Report Type: 
  Country: None (occurrence: None)
  Receive Date: 20071031
  Receipt Date: 20071025
  Transmission Date: 20080405
  Serious: Yes (Hospitalization)
  Sender: FDA-Public Use
  Company Number: FI-ROXANE LABORATORIES, INC-2007-BP-23327RO

PATIENT
  Age: 4 Year
  Sex: Male

DRUGS (4)
  1. MIDAZOLAM HCL [Suspect]
     Indication: SEDATION
  2. OXCONE [Suspect]
     Indication: SEDATION
  3. TROPISETRON [Suspect]
     Indication: NAUSEA
     Route: 042
  4. BIPERIDEN HYDROCHLORIDE TAB [Concomitant]
     Indication: EXTRAPYRAMIDAL DISORDER

REACTIONS (2)
  - EXTRAPYRAMIDAL DISORDER [None]
  - RESTLESSNESS [None]
